FAERS Safety Report 8869918 (Version 1)
Quarter: 2012Q4

REPORT INFORMATION
  Report Type: 
  Country: CH (occurrence: CH)
  Receive Date: 20121026
  Receipt Date: 20121026
  Transmission Date: 20130627
  Serious: Yes (Hospitalization)
  Sender: FDA-Public Use
  Company Number: CH-B.I. PHARMACEUTICALS,INC./RIDGEFIELD-2012-AP-00915SI

PATIENT
  Age: 57 Year
  Sex: Male

DRUGS (8)
  1. MOBICOX [Suspect]
     Indication: BACK PAIN
     Dosage: 15 mg
     Route: 048
     Dates: start: 20040101, end: 20120801
  2. MOBICOX [Suspect]
     Indication: NECK PAIN
  3. SALMETEROL-FLUTICASONE [Concomitant]
     Dosage: 1 puf
  4. SPASMO CANULASE [Concomitant]
     Dosage: numbers
  5. DIURETIC [Concomitant]
  6. ATACAND [Concomitant]
     Dosage: 16 mcg
  7. CEFTRIAXONE [Concomitant]
     Dates: end: 20120827
  8. METRONIDAZOLE [Concomitant]
     Dates: end: 20120827

REACTIONS (4)
  - Colitis [Not Recovered/Not Resolved]
  - Abdominal pain [Not Recovered/Not Resolved]
  - Diarrhoea [Not Recovered/Not Resolved]
  - Rectal haemorrhage [Not Recovered/Not Resolved]
